FAERS Safety Report 25300395 (Version 1)
Quarter: 2025Q2

REPORT INFORMATION
  Report Type: Spontaneous
  Country: US (occurrence: None)
  Receive Date: 20250509
  Receipt Date: 20250509
  Transmission Date: 20250716
  Serious: Yes (Life-Threatening)
  Sender: FDA-CTU
  Company Number: None

PATIENT
  Age: 79 Year
  Sex: Male
  Weight: 71.67 kg

DRUGS (3)
  1. IMIQUIMOD [Suspect]
     Active Substance: IMIQUIMOD
     Indication: Skin cancer
     Dosage: FREQUENCY : DAILY;?
     Dates: start: 20250507, end: 20250509
  2. CARBIDOP-LEVODOPA [Concomitant]
  3. TRAZODONE [Concomitant]
     Active Substance: TRAZODONE HYDROCHLORIDE

REACTIONS (3)
  - Increased upper airway secretion [None]
  - Cough [None]
  - Middle insomnia [None]

NARRATIVE: CASE EVENT DATE: 20250508
